FAERS Safety Report 15259964 (Version 1)
Quarter: 2018Q3

REPORT INFORMATION
  Report Type: Spontaneous
  Country: US (occurrence: US)
  Receive Date: 20180809
  Receipt Date: 20180809
  Transmission Date: 20181010
  Serious: No
  Sender: FDA-Public Use
  Company Number: US-PFIZER INC-2018317378

PATIENT
  Age: 59 Year
  Sex: Male

DRUGS (9)
  1. LORAZEPAM. [Concomitant]
     Active Substance: LORAZEPAM
     Indication: SEIZURE
     Dosage: 1 MG, AS NEEDED
     Dates: start: 2013
  2. LOVASTATIN. [Concomitant]
     Active Substance: LOVASTATIN
     Dosage: 20 MG, 1X/DAY
     Route: 048
     Dates: start: 2013
  3. VENLAFAXINE HCL [Concomitant]
     Active Substance: VENLAFAXINE HYDROCHLORIDE
     Dosage: 150 MG, DAILY
     Dates: start: 2015
  4. LEVOTHYROXINE SODIUM. [Concomitant]
     Active Substance: LEVOTHYROXINE SODIUM
     Dosage: 137 UG, UNK (6 DAYS A WEEK)
     Route: 048
     Dates: start: 2016
  5. NILOTINIB [Concomitant]
     Active Substance: NILOTINIB
     Dosage: 300 MG, 2X/DAY
     Route: 048
     Dates: start: 2017
  6. TASIGNA [Concomitant]
     Active Substance: NILOTINIB
     Indication: LEUKAEMIA
     Dosage: 300 MG, 2X/DAY
     Dates: start: 2017
  7. LEVETIRACETAM. [Concomitant]
     Active Substance: LEVETIRACETAM
     Dosage: 3000 MG, 2X/DAY
     Route: 048
     Dates: start: 2016
  8. LYRICA [Suspect]
     Active Substance: PREGABALIN
     Indication: LEUKAEMIA
     Dosage: 400 MG, 2X/DAY
     Route: 048
     Dates: start: 201601
  9. INSULIN [Concomitant]
     Active Substance: INSULIN NOS
     Indication: DIABETES MELLITUS
     Dosage: 40 IU, DAILY (1 UNIT EVERY HOUR + DEPENDS ON WHAT IS EATEN)
     Dates: start: 1988

REACTIONS (3)
  - Overdose [Unknown]
  - Product use in unapproved indication [Unknown]
  - Aphasia [Unknown]

NARRATIVE: CASE EVENT DATE: 201601
